FAERS Safety Report 4872373-7 (Version None)
Quarter: 2005Q4

REPORT INFORMATION
  Report Type: 
  Country: None (occurrence: None)
  Receive Date: 20051115
  Receipt Date: 20050810
  Transmission Date: 20060501
  Serious: Yes (Hospitalization)
  Sender: FDA-Public Use
  Company Number: 413935

PATIENT
  Age: 48 Year
  Sex: Male

DRUGS (2)
  1. PEGASYS [Suspect]
     Dosage: SUBCUTANEOUS
     Route: 058
     Dates: start: 20050315, end: 20050809
  2. COPEGUS [Suspect]
     Dosage: ORAL
     Route: 048
     Dates: start: 20050315, end: 20050809

REACTIONS (2)
  - ANGER [None]
  - SUICIDE ATTEMPT [None]
